FAERS Safety Report 6058840-1 (Version None)
Quarter: 2009Q1

REPORT INFORMATION
  Report Type: 
  Country: None (occurrence: None)
  Receive Date: 20090130
  Receipt Date: 20090121
  Transmission Date: 20090719
  Serious: Yes (Death, Hospitalization)
  Sender: FDA-Public Use
  Company Number: FR-WYE-G02977809

PATIENT
  Sex: Male

DRUGS (6)
  1. TORISEL [Suspect]
     Indication: RENAL CANCER METASTATIC
     Route: 042
     Dates: start: 20080604, end: 20080801
  2. MORPHINE [Suspect]
     Dosage: OVERDOSE AMOUNT = UNKNOWN
     Dates: start: 20080731, end: 20080731
  3. LYRICA [Concomitant]
     Indication: PAIN
     Dosage: UNKNOWN
     Route: 048
  4. DURAGESIC-100 [Concomitant]
     Dosage: 50 UG/HOUR; FREQUENCY UNSPECIFIED
     Route: 062
  5. MORPHINE [Concomitant]
     Indication: PAIN
     Dosage: UNKNOWN
     Route: 048
     Dates: end: 20080717
  6. FLUCONAZOLE [Concomitant]
     Indication: FUNGAL INFECTION
     Dosage: UNKNOWN
     Route: 048
     Dates: start: 20080529, end: 20080723

REACTIONS (9)
  - ACUTE PRERENAL FAILURE [None]
  - ASTHENIA [None]
  - C-REACTIVE PROTEIN INCREASED [None]
  - CONDITION AGGRAVATED [None]
  - DEHYDRATION [None]
  - DISEASE PROGRESSION [None]
  - OVERDOSE [None]
  - PYREXIA [None]
  - TREMOR [None]
